FAERS Safety Report 12322478 (Version 1)
Quarter: 2016Q2

REPORT INFORMATION
  Report Type: Spontaneous
  Country: US (occurrence: US)
  Receive Date: 20160502
  Receipt Date: 20160502
  Transmission Date: 20160815
  Serious: Yes (Hospitalization, Other)
  Sender: FDA-Public Use
  Company Number: US-AMGEN-USASP2016053947

PATIENT
  Sex: Male

DRUGS (1)
  1. REPATHA [Suspect]
     Active Substance: EVOLOCUMAB
     Indication: ARTERIOSCLEROSIS
     Dosage: 140 MG, UNK
     Route: 065
     Dates: start: 20160306

REACTIONS (8)
  - Blindness [Unknown]
  - Deafness [Unknown]
  - Gynaecomastia [Unknown]
  - Pain [Unknown]
  - Throat tightness [Unknown]
  - Headache [Unknown]
  - Hypertension [Unknown]
  - Penis disorder [Unknown]
